FAERS Safety Report 19866034 (Version 1)
Quarter: 2021Q3

REPORT INFORMATION
  Report Type: Spontaneous
  Country: US (occurrence: US)
  Receive Date: 20210922
  Receipt Date: 20210922
  Transmission Date: 20211014
  Serious: Yes (Hospitalization)
  Sender: FDA-Public Use
  Company Number: None

PATIENT
  Age: 51 Year
  Sex: Male

DRUGS (3)
  1. CINACALCET. [Concomitant]
     Active Substance: CINACALCET
  2. AZATHIOPRINE. [Concomitant]
     Active Substance: AZATHIOPRINE
  3. RETACRIT [Suspect]
     Active Substance: EPOETIN ALFA-EPBX
     Indication: PANCREAS TRANSPLANT
     Dosage: ?          OTHER FREQUENCY:3X PER WEEK;?
     Route: 058
     Dates: start: 20210719

REACTIONS (1)
  - Hospitalisation [None]
